FAERS Safety Report 5583993-9 (Version None)
Quarter: 2008Q1

REPORT INFORMATION
  Report Type: 
  Country: None (occurrence: None)
  Receive Date: 20080103
  Receipt Date: 20080103
  Transmission Date: 20080703
  Serious: Yes (Disabling)
  Sender: FDA-Public Use
  Company Number: None

PATIENT
  Age: 74 Year
  Sex: Female
  Weight: 71.3 kg

DRUGS (1)
  1. OXANDROLONE [Suspect]
     Indication: MALNUTRITION
     Dosage: 7.5 TWICE A DAY PO
     Route: 048
     Dates: start: 20071212, end: 20071213

REACTIONS (1)
  - LIVER FUNCTION TEST ABNORMAL [None]
